FAERS Safety Report 9097209 (Version 1)
Quarter: 2013Q1

REPORT INFORMATION
  Report Type: Spontaneous
  Country: IT (occurrence: IT)
  Receive Date: 20130212
  Receipt Date: 20130212
  Transmission Date: 20140127
  Serious: Yes (Death, Hospitalization)
  Sender: FDA-Public Use
  Company Number: IT-TEVA-384512ISR

PATIENT
  Age: 59 Year
  Sex: Female

DRUGS (6)
  1. FLUOROURACILE [Suspect]
     Indication: COLON CANCER METASTATIC
     Dosage: 3936 MILLIGRAM DAILY;
     Route: 041
     Dates: start: 20130107, end: 20130107
  2. FLUOROURACILE [Suspect]
     Dosage: 656 MILLIGRAM DAILY; 5G/100 ML
     Route: 040
     Dates: start: 20130107, end: 20130107
  3. OXALIPLATINO [Concomitant]
     Dosage: 139.4 MILLIGRAM DAILY;
     Route: 042
     Dates: start: 20130107, end: 20130107
  4. XANAX [Concomitant]
     Dosage: .25 MILLIGRAM DAILY;
  5. RANIDIL [Concomitant]
     Dosage: 300 MILLIGRAM DAILY;
     Route: 048
  6. ALIMTA [Concomitant]
     Dosage: 290 MILLIGRAM DAILY;
     Route: 042
     Dates: start: 20130107, end: 20130107

REACTIONS (3)
  - Mucosal inflammation [Fatal]
  - Clostridial infection [Fatal]
  - Pancytopenia [Fatal]
